FAERS Safety Report 5202949-9 (Version None)
Quarter: 2006Q4

REPORT INFORMATION
  Report Type: 
  Country: None (occurrence: None)
  Receive Date: 20061018
  Receipt Date: 20060215
  Transmission Date: 20070319
  Serious: Yes (Other)
  Sender: FDA-Public Use
  Company Number: PHEH2005US11719

PATIENT
  Age: 57 Year
  Sex: Female
  Weight: 79.8 kg

DRUGS (4)
  1. ZOMETA [Suspect]
     Indication: MULTIPLE MYELOMA
     Dosage: 3.5-4 MG IV QMONTH, INTRAVENOUS
     Route: 042
     Dates: start: 20040823, end: 20050825
  2. ZOMETA [Suspect]
     Indication: MULTIPLE MYELOMA
     Dosage: 3.5-4 MG IV QMONTH, INTRAVENOUS
     Route: 042
     Dates: start: 20050401, end: 20050825
  3. MELPHALAN (MELPHALAN) [Concomitant]
  4. PREDNISONE TAB [Concomitant]

REACTIONS (3)
  - BONE DISORDER [None]
  - HEARING IMPAIRED [None]
  - TOOTH EXTRACTION [None]
